FAERS Safety Report 23052181 (Version 9)
Quarter: 2025Q4

REPORT INFORMATION
  Report Type: Report from Study
  Country: ZA (occurrence: ZA)
  Receive Date: 20231010
  Receipt Date: 20251225
  Transmission Date: 20260117
  Serious: Yes (Disabling, Other)
  Sender: CELLTRION
  Company Number: ZA-CELLTRION INC.-2022ZA000492

PATIENT

DRUGS (10)
  1. INFLIXIMAB-DYYB [Suspect]
     Active Substance: INFLIXIMAB-DYYB
     Indication: Ankylosing spondylitis
     Dosage: 100 MG (8 WEEKLY INFUSIONS)
     Route: 042
     Dates: start: 20210324
  2. INFLIXIMAB-DYYB [Suspect]
     Active Substance: INFLIXIMAB-DYYB
     Dosage: 100 MG (8 WEEKLY INFUSIONS)
     Route: 042
     Dates: start: 20210519
  3. INFLIXIMAB-DYYB [Suspect]
     Active Substance: INFLIXIMAB-DYYB
     Dosage: 100 MG (8 WEEKLY INFUSIONS)
     Route: 042
     Dates: start: 20210714
  4. INFLIXIMAB-DYYB [Suspect]
     Active Substance: INFLIXIMAB-DYYB
     Dosage: 100 MG (8 WEEKLY INFUSIONS)
     Route: 042
     Dates: start: 20210908
  5. INFLIXIMAB-DYYB [Suspect]
     Active Substance: INFLIXIMAB-DYYB
     Dosage: 100 MG (8 WEEKLY INFUSIONS)
     Route: 042
     Dates: start: 20211110
  6. INFLIXIMAB-DYYB [Suspect]
     Active Substance: INFLIXIMAB-DYYB
     Dosage: 100 MG (8 WEEKLY INFUSIONS)
     Route: 042
     Dates: start: 20220121
  7. INFLIXIMAB-DYYB [Suspect]
     Active Substance: INFLIXIMAB-DYYB
     Dosage: UNK
     Dates: start: 20230331
  8. INFLIXIMAB-DYYB [Suspect]
     Active Substance: INFLIXIMAB-DYYB
     Dosage: 400 MG, EVERY 8 WEEKS (8 WEEKLY INTERVALS)
     Route: 042
     Dates: start: 20240507
  9. INFLIXIMAB-DYYB [Suspect]
     Active Substance: INFLIXIMAB-DYYB
     Dosage: 400 MG, EVERY 8 WEEKS (8 WEEKLY INTERVALS)
     Route: 042
     Dates: start: 20250808
  10. METHOTREXATE [Concomitant]
     Active Substance: METHOTREXATE
     Indication: Ankylosing spondylitis
     Dosage: 15 MG BD

REACTIONS (13)
  - Inflammation [Not Recovered/Not Resolved]
  - Nasopharyngitis [Recovering/Resolving]
  - Pyrexia [Not Recovered/Not Resolved]
  - Pneumonia [Recovering/Resolving]
  - Pneumonia [Recovering/Resolving]
  - Lower respiratory tract infection [Recovering/Resolving]
  - Chest discomfort [Unknown]
  - Large intestine infection [Recovering/Resolving]
  - Influenza [Recovering/Resolving]
  - Chest pain [Recovering/Resolving]
  - H1N1 influenza [Recovered/Resolved]
  - Upper respiratory tract infection [Recovering/Resolving]
  - Intentional dose omission [Recovering/Resolving]

NARRATIVE: CASE EVENT DATE: 20220117
